FAERS Safety Report 6619332-1 (Version None)
Quarter: 2010Q1

REPORT INFORMATION
  Report Type: 
  Country: None (occurrence: None)
  Receive Date: 20100308
  Receipt Date: 20100302
  Transmission Date: 20100710
  Serious: Yes (Other)
  Sender: FDA-Public Use
  Company Number: US-BRISTOL-MYERS SQUIBB COMPANY-14999205

PATIENT

DRUGS (1)
  1. ORENCIA [Suspect]

REACTIONS (1)
  - GASTRIC BYPASS [None]
